FAERS Safety Report 7295010-3 (Version None)
Quarter: 2011Q1

REPORT INFORMATION
  Report Type: 
  Country: None (occurrence: None)
  Receive Date: 20110216
  Receipt Date: 20110204
  Transmission Date: 20110831
  Serious: Yes (Death)
  Sender: FDA-Public Use
  Company Number: AU-PURDUE-USA-2011-0063470

PATIENT
  Sex: Male

DRUGS (8)
  1. TRAMADOL (SIMILAR TO NDA 21-745) [Suspect]
     Indication: PRODUCT USED FOR UNKNOWN INDICATION
     Dosage: 100 MG, UNK
     Route: 042
  2. MORPHINE SULFATE [Suspect]
     Dosage: 10 MG, SEE TEXT
     Route: 030
  3. METOCLOPRAMIDE HCL [Concomitant]
  4. OXYCODONE HCL [Suspect]
     Indication: PRODUCT USED FOR UNKNOWN INDICATION
     Dosage: UNK UNK, SEE TEXT
     Route: 048
  5. ROPIVACAINE [Concomitant]
  6. OXYCONTIN [Suspect]
     Indication: PRODUCT USED FOR UNKNOWN INDICATION
     Dosage: 40 MG, SEE TEXT
     Route: 048
  7. PROPOFOL [Suspect]
     Indication: PRODUCT USED FOR UNKNOWN INDICATION
     Route: 051
  8. PARACETAMOL [Concomitant]
     Dosage: UNK UNK, Q6H

REACTIONS (3)
  - MULTIPLE DRUG OVERDOSE [None]
  - HYPERTENSIVE HEART DISEASE [None]
  - ARTERIOSCLEROSIS [None]
